FAERS Safety Report 7916597-0 (Version None)
Quarter: 2011Q4

REPORT INFORMATION
  Report Type: 
  Country: None (occurrence: None)
  Receive Date: 20111104
  Receipt Date: 20111031
  Transmission Date: 20120403
  Serious: Yes (Hospitalization, Other)
  Sender: FDA-Public Use
  Company Number: 2011028871

PATIENT
  Age: 53 Year
  Sex: Female
  Weight: 83.4619 kg

DRUGS (28)
  1. RESTASIS [Concomitant]
  2. BACTROBAN [Concomitant]
  3. HIZENTRA [Suspect]
  4. HIZENTRA [Suspect]
  5. HIZENTRA [Suspect]
  6. SYNTHROID [Concomitant]
  7. HIZENTRA [Suspect]
     Indication: IMMUNODEFICIENCY COMMON VARIABLE
     Dosage: SEE IMAGE
     Route: 058
     Dates: start: 20101218
  8. HIZENTRA [Suspect]
     Indication: IMMUNODEFICIENCY COMMON VARIABLE
     Dosage: SEE IMAGE
     Route: 058
     Dates: start: 20101001
  9. HIZENTRA [Suspect]
     Indication: IMMUNODEFICIENCY COMMON VARIABLE
     Dosage: SEE IMAGE
     Route: 058
     Dates: start: 20110903, end: 20110903
  10. HIZENTRA [Suspect]
  11. VICODIN [Concomitant]
  12. ZOFRAN [Concomitant]
  13. CLONAZEPAM [Concomitant]
  14. LEXAPRO [Concomitant]
  15. VITAMIN D [Concomitant]
  16. TYLENOL W/ CODEINE NO. 3 [Concomitant]
  17. HIZENTRA [Suspect]
  18. LOTEMAX [Concomitant]
  19. OXYCONTIN [Concomitant]
  20. ESTRING [Concomitant]
  21. FLORINEF [Concomitant]
  22. HIZENTRA [Suspect]
  23. LIDODERM [Concomitant]
  24. PREDNISONE TAB [Concomitant]
  25. HIZENTRA [Suspect]
  26. PROBIOTIC (LACTOBACILLUS ACIDOPHILUS) [Concomitant]
  27. LORATADINE [Concomitant]
  28. VIVELLE-DOT [Concomitant]

REACTIONS (12)
  - INTERSTITIAL LUNG DISEASE [None]
  - WOUND [None]
  - SKIN LESION [None]
  - INFLUENZA LIKE ILLNESS [None]
  - SINUSITIS [None]
  - COUGH [None]
  - HERPES SIMPLEX [None]
  - ORAL INFECTION [None]
  - CANDIDIASIS [None]
  - IMPAIRED HEALING [None]
  - SINUS CONGESTION [None]
  - PAIN [None]
